FAERS Safety Report 5222401-4 (Version None)
Quarter: 2007Q1

REPORT INFORMATION
  Report Type: 
  Country: None (occurrence: None)
  Receive Date: 20070129
  Receipt Date: 20060412
  Transmission Date: 20070707
  Serious: No
  Sender: FDA-Public Use
  Company Number: US-BRISTOL-MYERS SQUIBB COMPANY-13344585

PATIENT
  Age: 43 Year
  Sex: Female
  Weight: 64 kg

DRUGS (3)
  1. DESYREL [Suspect]
     Indication: INSOMNIA
     Route: 048
     Dates: start: 20060327, end: 20060412
  2. DESYREL [Suspect]
     Indication: DEPRESSION
     Route: 048
     Dates: start: 20060327, end: 20060412
  3. PAXIL [Concomitant]

REACTIONS (1)
  - RECTAL HAEMORRHAGE [None]
